FAERS Safety Report 6401703-X (Version None)
Quarter: 2009Q4

REPORT INFORMATION
  Report Type: 
  Country: None (occurrence: None)
  Receive Date: 20091009
  Receipt Date: 20090925
  Transmission Date: 20100525
  Serious: Yes (Hospitalization)
  Sender: FDA-Public Use
  Company Number: 8052619

PATIENT
  Age: 58 Year
  Sex: Female
  Weight: 102.4 kg

DRUGS (8)
  1. CERTOLIZUMAB PEGOL [Suspect]
     Indication: RHEUMATOID ARTHRITIS
     Dosage: 400 MG 1/2W SC
     Route: 058
     Dates: start: 20051130, end: 20060322
  2. CERTOLIZUMAB PEGOL [Suspect]
     Indication: RHEUMATOID ARTHRITIS
     Dosage: 400 MG 1/2W SC
     Route: 058
     Dates: start: 20060419, end: 20071212
  3. CERTOLIZUMAB PEGOL [Suspect]
     Indication: RHEUMATOID ARTHRITIS
     Dosage: 200 MG 1/2W SC
     Dates: start: 20071212, end: 20090925
  4. METHOTREXATE [Concomitant]
  5. MELOXICAM [Concomitant]
  6. METHYLPREDNISOLONE [Concomitant]
  7. ACCUZIDE [Concomitant]
  8. OMEPRAZOLE [Concomitant]

REACTIONS (5)
  - ERYTHEMA [None]
  - PAIN [None]
  - STAPHYLOCOCCAL INFECTION [None]
  - SWELLING [None]
  - UTERINE HAEMORRHAGE [None]
